FAERS Safety Report 8932507 (Version 1)
Quarter: 2012Q4

REPORT INFORMATION
  Report Type: Spontaneous
  Country: US (occurrence: None)
  Receive Date: 20121126
  Receipt Date: 20121126
  Transmission Date: 20130627
  Serious: Yes (Disabling)
  Sender: FDA-Public Use
  Company Number: None

PATIENT
  Sex: Female
  Weight: 66.23 kg

DRUGS (2)
  1. MINOXIDIL [Suspect]
     Indication: BLOOD PRESSURE HIGH
     Dosage: 2.5  MG   3 TABS DAILY   BY MOUTH
     Route: 048
     Dates: start: 20120717, end: 20120730
  2. MINOXIDIL [Suspect]
     Indication: BLOOD PRESSURE HIGH

REACTIONS (2)
  - Deafness [None]
  - Tinnitus [None]
